FAERS Safety Report 12527347 (Version 1)
Quarter: 2016Q3

REPORT INFORMATION
  Report Type: Spontaneous
  Country: US (occurrence: US)
  Receive Date: 20160705
  Receipt Date: 20160705
  Transmission Date: 20161109
  Serious: No
  Sender: FDA-Public Use
  Company Number: US-BAYER-2016-124067

PATIENT
  Age: 79 Year
  Sex: Male
  Weight: 76.64 kg

DRUGS (5)
  1. LISINOPRIL. [Concomitant]
     Active Substance: LISINOPRIL
  2. CLARITIN [Suspect]
     Active Substance: LORATADINE
     Dosage: 1 DF, QD
     Route: 048
  3. CALCIUM [Concomitant]
     Active Substance: CALCIUM
  4. CLARITIN REDITABS [Suspect]
     Active Substance: LORATADINE
     Dosage: 1 DF, QD
     Route: 048
  5. OPTI SAFE AREDS [Concomitant]

REACTIONS (2)
  - Off label use [None]
  - Expired product administered [None]
